FAERS Safety Report 17512575 (Version 2)
Quarter: 2020Q1

REPORT INFORMATION
  Report Type: Spontaneous
  Country: CH (occurrence: CH)
  Receive Date: 20200306
  Receipt Date: 20200316
  Transmission Date: 20200409
  Serious: Yes (Hospitalization, Other)
  Sender: FDA-Public Use
  Company Number: CH-009507513-2003CHE000880

PATIENT
  Age: 81 Year
  Sex: Male
  Weight: 56.5 kg

DRUGS (12)
  1. ATORVASTATIN CALCIUM. [Suspect]
     Active Substance: ATORVASTATIN CALCIUM
     Dosage: 1-0-0 (ONCE DAILY)
     Route: 048
     Dates: start: 20191224
  2. SPIRICORT [Concomitant]
     Active Substance: PREDNISOLONE
     Indication: POLYMYALGIA RHEUMATICA
     Dosage: VARIABLE, UP TO 60 MG DAILY
     Route: 048
  3. DIAMICRON [Suspect]
     Active Substance: GLICLAZIDE
     Indication: DIABETES MELLITUS
     Dosage: NOT KNOWN SINCE WHEN, NOT RECORDED IN DECEMBER 2019
     Route: 048
     Dates: end: 20200121
  4. AMLODIPINE BESYLATE (+) INDAPAMIDE (+) PERINDOPRIL ARGININE [Concomitant]
     Active Substance: AMLODIPINE BESYLATE\INDAPAMIDE\PERINDOPRIL ARGININE
     Dosage: CONTINUED INSTEAD WITH COVERSUM N COMBI AND AMLODIPINE
     Route: 048
     Dates: end: 20200121
  5. FOLIC ACID. [Concomitant]
     Active Substance: FOLIC ACID
     Dosage: 1-0-0 (ONCE DAILY)
     Route: 048
     Dates: start: 20191224
  6. BACTRIM [Suspect]
     Active Substance: SULFAMETHOXAZOLE\TRIMETHOPRIM
     Dosage: INGREDIENT (SULFAMETHOXAZOLE): 800MG; INGREDIENT (TRIMETHOPRIM): 160MG
     Route: 048
     Dates: start: 20191224, end: 20200122
  7. CONCOR COR [Concomitant]
     Active Substance: BISOPROLOL FUMARATE
     Dosage: 1-0-0 (ONCE DAILY)
     Route: 048
  8. PRADAXA [Concomitant]
     Active Substance: DABIGATRAN ETEXILATE MESYLATE
     Dosage: 1-0-1 (TWICE DAILY)
     Route: 048
     Dates: start: 201907
  9. ASPIRIN CARDIO [Concomitant]
     Active Substance: ASPIRIN
     Dosage: 1-0-0
     Route: 048
     Dates: start: 2003
  10. JANUMET [Suspect]
     Active Substance: METFORMIN HYDROCHLORIDE\SITAGLIPTIN PHOSPHATE
     Indication: DIABETES MELLITUS
     Dosage: UNK, QD
     Route: 048
     Dates: end: 20200121
  11. PANTOPRAZOLE [Concomitant]
     Active Substance: PANTOPRAZOLE
     Dosage: 1-0-0 (ONCE DAILY)
     Route: 048
     Dates: start: 2019
  12. CALCIUM SANDOZ D3 [Concomitant]
     Dosage: 1-0-0 (ONCE DAILY)
     Route: 048
     Dates: start: 20191224

REACTIONS (1)
  - Drug reaction with eosinophilia and systemic symptoms [Recovering/Resolving]

NARRATIVE: CASE EVENT DATE: 20200120
